FAERS Safety Report 13286455 (Version 1)
Quarter: 2017Q1

REPORT INFORMATION
  Report Type: Report from Study
  Country: None (occurrence: US)
  Receive Date: 20170301
  Receipt Date: 20170301
  Transmission Date: 20170428
  Serious: Yes (Hospitalization, Other)
  Sender: FDA-Public Use
  Company Number: US-ABBVIE-16K-163-1815477-00

PATIENT
  Age: 60 Year
  Sex: Male
  Weight: 102.15 kg

DRUGS (7)
  1. METHOTREXATE. [Concomitant]
     Active Substance: METHOTREXATE
     Indication: PSORIASIS
  2. HCTZ [Concomitant]
     Active Substance: HYDROCHLOROTHIAZIDE
     Indication: HYPERTENSION
  3. LEVOTHYROXINE. [Concomitant]
     Active Substance: LEVOTHYROXINE
     Indication: HYPOTHYROIDISM
  4. LISINOPRIL. [Concomitant]
     Active Substance: LISINOPRIL
     Indication: HYPERTENSION
  5. HUMIRA [Suspect]
     Active Substance: ADALIMUMAB
     Indication: PSORIASIS
     Dosage: DAY 1 - LOADING DOSE
     Route: 058
     Dates: start: 201611, end: 201611
  6. HUMIRA [Suspect]
     Active Substance: ADALIMUMAB
     Route: 058
     Dates: end: 201612
  7. HYDROCHLOROTHIAZIDE. [Concomitant]
     Active Substance: HYDROCHLOROTHIAZIDE
     Indication: PRODUCT USED FOR UNKNOWN INDICATION

REACTIONS (12)
  - Sternal fracture [Recovering/Resolving]
  - Tibia fracture [Recovering/Resolving]
  - Spinal fracture [Recovering/Resolving]
  - Pneumothorax [Recovered/Resolved]
  - Intestinal perforation [Recovering/Resolving]
  - Pain [Recovered/Resolved]
  - Localised infection [Recovered/Resolved]
  - Traumatic liver injury [Recovering/Resolving]
  - Road traffic accident [Recovered/Resolved]
  - Rib fracture [Recovering/Resolving]
  - Pneumonia [Recovered/Resolved]
  - Multiple fractures [Not Recovered/Not Resolved]

NARRATIVE: CASE EVENT DATE: 201611
